FAERS Safety Report 5494890-1 (Version None)
Quarter: 2007Q4

REPORT INFORMATION
  Report Type: 
  Country: None (occurrence: None)
  Receive Date: 20071022
  Receipt Date: 20071011
  Transmission Date: 20080405
  Serious: Yes (Other)
  Sender: FDA-Public Use
  Company Number: GXKR2007IE08744

PATIENT
  Sex: Male

DRUGS (5)
  1. TRADOL (NGX)(TRAMADOL) CAPSULE, 50MG [Suspect]
     Dosage: 200 MG/DAY, ORAL
     Route: 048
     Dates: start: 20070913, end: 20070916
  2. MELOXICAM [Suspect]
     Dosage: 1 DF/DAY, ORAL
     Route: 048
     Dates: start: 20070913, end: 20070916
  3. TIOTROPIUM BROMIDE (TIOTROPIUM BROMIDE) [Concomitant]
  4. SEREVENT (SALMETEROL XINAFOATE) INHALER [Concomitant]
  5. NU-SEALS (ACETYLSALICYLIC ACID) [Concomitant]

REACTIONS (2)
  - MUSCULAR WEAKNESS [None]
  - NEURALGIA [None]
